FAERS Safety Report 6378601-3 (Version None)
Quarter: 2009Q3

REPORT INFORMATION
  Report Type: 
  Country: None (occurrence: None)
  Receive Date: 20090928
  Receipt Date: 20090917
  Transmission Date: 20100115
  Serious: Yes (Death, Hospitalization)
  Sender: FDA-Public Use
  Company Number: US-JNJFOC-20090905461

PATIENT
  Age: 43 Year
  Sex: Female
  Weight: 68.95 kg

DRUGS (7)
  1. REMICADE [Suspect]
     Indication: RHEUMATOID ARTHRITIS
     Route: 042
  2. REMICADE [Suspect]
     Indication: PSORIASIS
     Route: 042
  3. METHOTREXATE [Concomitant]
  4. PROZAC [Concomitant]
  5. WARFARIN [Concomitant]
  6. MS CONTIN [Concomitant]
  7. XANAX [Concomitant]

REACTIONS (1)
  - DEATH [None]
